FAERS Safety Report 4673783-3 (Version None)
Quarter: 2005Q2

REPORT INFORMATION
  Report Type: 
  Country: None (occurrence: None)
  Receive Date: 20050525
  Receipt Date: 20050516
  Transmission Date: 20051028
  Serious: Yes (Hospitalization)
  Sender: FDA-Public Use
  Company Number: US-ABBOTT-05P-163-0300593-00

PATIENT
  Sex: Female
  Weight: 88.53 kg

DRUGS (15)
  1. HUMIRA [Suspect]
     Indication: RHEUMATOID ARTHRITIS
     Route: 058
     Dates: start: 20040401, end: 20040601
  2. HUMIRA [Suspect]
     Route: 058
     Dates: start: 20050101
  3. ISOSORBIDE [Concomitant]
     Indication: BLOOD PRESSURE
     Route: 048
     Dates: start: 20000101
  4. CELECOXIB [Concomitant]
     Indication: RHEUMATOID ARTHRITIS
     Route: 048
  5. LOSARTAN POTASSIUM [Concomitant]
     Indication: CARDIAC DISORDER
     Route: 048
     Dates: start: 20020101
  6. CETIRIZINE HCL [Concomitant]
     Indication: SINUS CONGESTION
     Route: 048
     Dates: start: 20030101
  7. ERYTHROMYCIN [Concomitant]
     Indication: ROSACEA
     Route: 048
  8. ASPIRIN [Concomitant]
     Indication: CARDIAC DISORDER
     Route: 048
     Dates: start: 20000101
  9. PANTOPRAZOLE [Concomitant]
     Indication: STOMACH DISCOMFORT
     Route: 048
     Dates: start: 20040101
  10. GLIPIZIDE [Concomitant]
     Indication: DIABETES MELLITUS
     Route: 048
     Dates: start: 20030101
  11. FUROSEMIDE [Concomitant]
     Indication: OEDEMA PERIPHERAL
     Route: 048
     Dates: start: 20040101
  12. POTASSIUM CHLORIDE [Concomitant]
     Indication: MINERAL SUPPLEMENTATION
     Route: 048
     Dates: start: 20040101
  13. TOCOPHEROL CONCENTRATE CAP [Concomitant]
     Indication: VITAMIN SUPPLEMENTATION
     Route: 048
  14. PSEUDOEPHEDRINE HYDROCHLORIDE [Concomitant]
     Indication: SINUS CONGESTION
     Route: 048
  15. PARACETAMOL [Concomitant]
     Indication: PAIN
     Route: 048

REACTIONS (5)
  - DYSPNOEA [None]
  - HEART RATE INCREASED [None]
  - HYPERHIDROSIS [None]
  - LOSS OF CONSCIOUSNESS [None]
  - PAIN IN JAW [None]
